FAERS Safety Report 9429111 (Version 1)
Quarter: 2013Q3

REPORT INFORMATION
  Report Type: Spontaneous
  Country: FR (occurrence: FR)
  Receive Date: 20130730
  Receipt Date: 20130730
  Transmission Date: 20140515
  Serious: Yes (Hospitalization)
  Sender: FDA-Public Use
  Company Number: FR-JNJFOC-20130716629

PATIENT
  Age: 19 Year
  Sex: Female

DRUGS (5)
  1. ZALDIAR [Suspect]
     Indication: PRODUCT USED FOR UNKNOWN INDICATION
     Route: 048
     Dates: start: 20130518, end: 20130518
  2. CONTRAMAL [Suspect]
     Indication: PRODUCT USED FOR UNKNOWN INDICATION
     Route: 048
     Dates: start: 20130518, end: 20130518
  3. KLIPAL CODEINE [Suspect]
     Indication: PRODUCT USED FOR UNKNOWN INDICATION
     Route: 048
     Dates: start: 20130518, end: 20130518
  4. PREDNISOLONE [Concomitant]
     Indication: PRODUCT USED FOR UNKNOWN INDICATION
     Route: 048
     Dates: start: 20130518, end: 20130518
  5. PYOSTACINE [Concomitant]
     Indication: PRODUCT USED FOR UNKNOWN INDICATION
     Route: 048
     Dates: start: 20130518, end: 20130518

REACTIONS (4)
  - Convulsion [Recovered/Resolved]
  - Intentional overdose [Recovered/Resolved]
  - Transaminases increased [Recovered/Resolved]
  - Vomiting [Unknown]
